FAERS Safety Report 11096167 (Version 1)
Quarter: 2015Q2

REPORT INFORMATION
  Report Type: Spontaneous
  Country: US (occurrence: None)
  Receive Date: 20150506
  Receipt Date: 20150506
  Transmission Date: 20150821
  Serious: Yes (Disabling, Other)
  Sender: FDA-Public Use
  Company Number: None

PATIENT
  Age: 38 Year
  Sex: Female
  Weight: 70.76 kg

DRUGS (2)
  1. SULFAMETHOXAZOLE/TRIMETHORPRIM [Suspect]
     Active Substance: SULFAMETHOXAZOLE\TRIMETHOPRIM
     Indication: URINARY TRACT INFECTION
     Dosage: ONE TABLET, TWICE DAILY, TAKEN BY MOUTH.
     Route: 048
     Dates: start: 20111213, end: 20111221
  2. LEVOTHYROXINE [Concomitant]
     Active Substance: LEVOTHYROXINE

REACTIONS (4)
  - Weight decreased [None]
  - Hypothyroidism [None]
  - Lymphadenopathy [None]
  - Drug hypersensitivity [None]

NARRATIVE: CASE EVENT DATE: 20111213
